FAERS Safety Report 20441662 (Version 1)
Quarter: 2022Q1

REPORT INFORMATION
  Report Type: Spontaneous
  Country: NL (occurrence: NL)
  Receive Date: 20220208
  Receipt Date: 20220208
  Transmission Date: 20220423
  Serious: Yes (Life-Threatening)
  Sender: FDA-Public Use
  Company Number: None

PATIENT
  Age: 83 Year
  Sex: Female
  Weight: 89.9 kg

DRUGS (10)
  1. APIXABAN [Suspect]
     Active Substance: APIXABAN
     Indication: Product used for unknown indication
     Dosage: STRENGTH: 5 MG
     Dates: start: 20211129, end: 20211202
  2. PHENPROCOUMON [Suspect]
     Active Substance: PHENPROCOUMON
     Indication: Atrial fibrillation
     Dosage: STRENGTH: 3 MG, 1 X PER DAY 1 PIECE
     Dates: start: 20130614, end: 20211128
  3. MOVICOLON [Concomitant]
     Active Substance: POLYETHYLENE GLYCOL 3350\POTASSIUM CHLORIDE\SODIUM BICARBONATE\SODIUM CHLORIDE
     Dosage: POWDER FOR ORAL SOLUTION IN SACHET
  4. SPIRONOLACTONE [Concomitant]
     Active Substance: SPIRONOLACTONE
     Dosage: STRENGTH: 12.5 MG
  5. HYDROQUININE [Concomitant]
     Dosage: STRENGTH: 100 MG
  6. METOPROLOL TARTRATE [Concomitant]
     Active Substance: METOPROLOL TARTRATE
     Dosage: STRENGTH: 200 MG
  7. FUROSEMIDE [Concomitant]
     Active Substance: FUROSEMIDE
     Dosage: STRENGTH: 40 MG
  8. LEVOTHYROXINE [Concomitant]
     Active Substance: LEVOTHYROXINE
     Dosage: STRENGTH: 50 MICRO GRAM
  9. FENTANYL [Concomitant]
     Active Substance: FENTANYL
     Dosage: PATCH 12 MICRO GRAM /HR (GENERIC+DUROGESIC)
  10. AMIODARONE [Concomitant]
     Active Substance: AMIODARONE
     Dosage: STRENGTH: 200 MG

REACTIONS (3)
  - Shock haemorrhagic [Recovering/Resolving]
  - Subcutaneous haematoma [Recovering/Resolving]
  - International normalised ratio increased [Recovering/Resolving]

NARRATIVE: CASE EVENT DATE: 20211202
